FAERS Safety Report 21254645 (Version 1)
Quarter: 2022Q3

REPORT INFORMATION
  Report Type: Spontaneous
  Country: None (occurrence: US)
  Receive Date: 20220825
  Receipt Date: 20220825
  Transmission Date: 20221027
  Serious: No
  Sender: FDA-Public Use
  Company Number: US-ITALFARMACO SPA-2132218

PATIENT
  Age: 66 Year
  Sex: Female

DRUGS (2)
  1. TIGLUTIK [Suspect]
     Active Substance: RILUZOLE
     Indication: Amyotrophic lateral sclerosis
     Route: 048
     Dates: start: 20220331
  2. MAGNESIUM OXIDE [Concomitant]
     Active Substance: MAGNESIUM OXIDE

REACTIONS (5)
  - Dizziness [Unknown]
  - Lethargy [Unknown]
  - Hypoaesthesia oral [Unknown]
  - Photopsia [Unknown]
  - Autoscopy [Unknown]

NARRATIVE: CASE EVENT DATE: 20220401
